FAERS Safety Report 12224498 (Version 3)
Quarter: 2016Q2

REPORT INFORMATION
  Report Type: Spontaneous
  Country: BR (occurrence: BR)
  Receive Date: 20160331
  Receipt Date: 20160406
  Transmission Date: 20160815
  Serious: Yes (Other)
  Sender: FDA-Public Use
  Company Number: BR-PFIZER INC-2016159325

PATIENT
  Sex: Female

DRUGS (1)
  1. CHAMPIX [Suspect]
     Active Substance: VARENICLINE TARTRATE
     Dosage: UNK

REACTIONS (18)
  - Nephrolithiasis [Unknown]
  - Depression [Unknown]
  - Irritability [Unknown]
  - Tremor [Unknown]
  - Abdominal distension [Unknown]
  - Blood pressure abnormal [Unknown]
  - Crying [Unknown]
  - Abdominal pain upper [Unknown]
  - Hallucination [Unknown]
  - Feeling abnormal [Unknown]
  - Insomnia [Unknown]
  - Drug ineffective [Unknown]
  - Hypothyroidism [Unknown]
  - Renal disorder [Unknown]
  - Palpitations [Unknown]
  - Disease progression [Unknown]
  - Retching [Unknown]
  - Vomiting [Unknown]
